FAERS Safety Report 10419424 (Version 1)
Quarter: 2014Q3

REPORT INFORMATION
  Report Type: Report from Study
  Country: BR (occurrence: BR)
  Receive Date: 20140829
  Receipt Date: 20140829
  Transmission Date: 20150326
  Serious: Yes (Hospitalization)
  Sender: FDA-Public Use
  Company Number: PHHY2014BR108722

PATIENT
  Age: 12 Year
  Sex: Female
  Weight: 30 kg

DRUGS (4)
  1. ZOTEON PODHALER [Suspect]
     Active Substance: TOBRAMYCIN
     Indication: OFF LABEL USE
  2. PULMOZYME [Concomitant]
     Active Substance: DORNASE ALFA
     Indication: AIRWAY SECRETION CLEARANCE THERAPY
     Dosage: 1 DF, DAILY
  3. COLOMYCIN [Concomitant]
     Active Substance: COLISTIN
     Indication: AIRWAY SECRETION CLEARANCE THERAPY
     Dosage: 2 DF (WITH SALINE SOLUTION), DAILY
  4. ZOTEON PODHALER [Suspect]
     Active Substance: TOBRAMYCIN
     Indication: AIRWAY SECRETION CLEARANCE THERAPY
     Dosage: 4 DF, BID (4 CAPSULES IN THE MORNING AND 4 CAPSULES AT NIGHT)
     Dates: start: 201405

REACTIONS (3)
  - Aphagia [Recovered/Resolved]
  - Increased viscosity of bronchial secretion [Recovered/Resolved]
  - Cough [Recovered/Resolved]

NARRATIVE: CASE EVENT DATE: 20140805
